FAERS Safety Report 6848283-2 (Version None)
Quarter: 2010Q3

REPORT INFORMATION
  Report Type: 
  Country: None (occurrence: None)
  Receive Date: 20100716
  Receipt Date: 20100715
  Transmission Date: 20110219
  Serious: Yes (Hospitalization)
  Sender: FDA-Public Use
  Company Number: FR-ROCHE-699487

PATIENT
  Age: 61 Year
  Sex: Male

DRUGS (6)
  1. ROCEPHIN [Suspect]
     Indication: PRODUCT USED FOR UNKNOWN INDICATION
     Dosage: NO RE-CHALLENGE WAS GIVEN
     Route: 042
     Dates: start: 20100301, end: 20100317
  2. VANCOMYCIN HCL [Suspect]
     Indication: PRODUCT USED FOR UNKNOWN INDICATION
     Dosage: NO RE-CHALLENGE WAS GIVEN
     Route: 042
     Dates: start: 20100301, end: 20100317
  3. LEXOMIL [Concomitant]
  4. ZOPICLONE [Concomitant]
  5. ZOLOFT [Concomitant]
  6. CEFAZOLIN [Concomitant]
     Dosage: FORM: ANTIBIOPROPHYLAXIS

REACTIONS (3)
  - EOSINOPHILIA [None]
  - ERYTHEMA [None]
  - OEDEMA [None]
